FAERS Safety Report 7511367-X (Version None)
Quarter: 2011Q2

REPORT INFORMATION
  Report Type: 
  Country: None (occurrence: None)
  Receive Date: 20110531
  Receipt Date: 20110110
  Transmission Date: 20111010
  Serious: Yes (Hospitalization, Other)
  Sender: FDA-Public Use
  Company Number: US-BAYER-201015393NA

PATIENT
  Age: 22 Year
  Sex: Female
  Weight: 220 kg

DRUGS (6)
  1. ERYTHROMYCIN [Concomitant]
     Dosage: UNK
     Dates: start: 20060316
  2. DROSPIRENONE AND ETHINYL ESTRADIOL [Suspect]
     Indication: OVARIAN CYST
     Dosage: UNK UNK, QD
     Dates: start: 20080905, end: 20090101
  3. YASMIN [Suspect]
     Dosage: UNK, QD
     Dates: start: 20050101, end: 20100101
  4. ALLEGRA [Concomitant]
     Indication: MULTIPLE ALLERGIES
     Dosage: UNK
     Dates: start: 20050101
  5. FLUCONAZOLE [Concomitant]
     Dosage: 150 MG, UNK
     Dates: start: 20060317
  6. YASMIN [Suspect]
     Indication: OVARIAN CYST
     Dosage: UNK UNK, UNK
     Route: 048
     Dates: start: 20060501, end: 20070323

REACTIONS (6)
  - GALLBLADDER DISORDER [None]
  - ABDOMINAL DISTENSION [None]
  - ABDOMINAL PAIN [None]
  - PAIN [None]
  - CHOLECYSTITIS CHRONIC [None]
  - CHOLELITHIASIS [None]
